FAERS Safety Report 17730409 (Version 4)
Quarter: 2020Q2

REPORT INFORMATION
  Report Type: Spontaneous
  Country: GB (occurrence: GB)
  Receive Date: 20200430
  Receipt Date: 20200601
  Transmission Date: 20200714
  Serious: Yes (Death, Disabling)
  Sender: FDA-Public Use
  Company Number: GB-MYLANLABS-2020M1042364

PATIENT
  Age: 59 Year
  Sex: Male
  Weight: 103 kg

DRUGS (3)
  1. DOXYCYCLINE. [Suspect]
     Active Substance: DOXYCYCLINE
     Indication: COUGH
     Dosage: 200 MILLIGRAM (WITH THE FIRST DOSE TO BE A DOUBLE DOSE)
     Dates: start: 20200316, end: 20200316
  2. MOMETASONE [Concomitant]
     Active Substance: MOMETASONE
     Indication: NASAL CONGESTION
     Dosage: 50 MICROGRAM, QD (EACH NOSTRIL)
     Route: 045
     Dates: start: 20200310
  3. DOXYCYCLINE. [Suspect]
     Active Substance: DOXYCYCLINE
     Dosage: 100 MILLIGRAM
     Dates: start: 20200317

REACTIONS (12)
  - Hyperhidrosis [Recovered/Resolved]
  - Coronary artery thrombosis [Unknown]
  - Cardiac disorder [Unknown]
  - Dysstasia [Recovered/Resolved]
  - Malaise [Recovered/Resolved]
  - Chest discomfort [Recovered/Resolved]
  - Pallor [Unknown]
  - Body temperature decreased [Recovered/Resolved]
  - Drug ineffective [Unknown]
  - Myalgia [Recovered/Resolved]
  - Myocardial infarction [Fatal]
  - Fatigue [Unknown]

NARRATIVE: CASE EVENT DATE: 20200316
